FAERS Safety Report 12610622 (Version 1)
Quarter: 2016Q3

REPORT INFORMATION
  Report Type: Spontaneous
  Country: US (occurrence: US)
  Receive Date: 20160801
  Receipt Date: 20160801
  Transmission Date: 20161109
  Serious: No
  Sender: FDA-Public Use
  Company Number: US-BAUSCH-BL-2016-016259

PATIENT
  Age: 62 Year
  Sex: Female
  Weight: 61.29 kg

DRUGS (4)
  1. UCERIS [Suspect]
     Active Substance: BUDESONIDE
     Indication: COLITIS
     Dosage: TWO APPLICATORS
     Route: 054
     Dates: start: 20160512
  2. CIPRO [Concomitant]
     Active Substance: CIPROFLOXACIN HYDROCHLORIDE
     Indication: COLITIS
     Route: 048
     Dates: start: 2013
  3. UCERIS [Suspect]
     Active Substance: BUDESONIDE
     Dosage: ONE APPLICATORS
     Route: 054
  4. FLAGYL [Concomitant]
     Active Substance: METRONIDAZOLE\METRONIDAZOLE HYDROCHLORIDE
     Indication: POUCHITIS
     Route: 048
     Dates: start: 20160504

REACTIONS (2)
  - Drug administration error [Unknown]
  - No adverse event [Unknown]

NARRATIVE: CASE EVENT DATE: 201605
